FAERS Safety Report 24930427 (Version 1)
Quarter: 2025Q1

REPORT INFORMATION
  Report Type: Other
  Country: US (occurrence: US)
  Receive Date: 20250205
  Receipt Date: 20250205
  Transmission Date: 20250409
  Serious: Yes (Other)
  Sender: PL DEVELOPMENTS
  Company Number: US-P+L Developments of Newyork Corporation-2170523

PATIENT
  Age: 81 Year
  Sex: Female

DRUGS (1)
  1. LORATADINE [Suspect]
     Active Substance: LORATADINE
     Indication: Product used for unknown indication

REACTIONS (11)
  - Chest pain [Unknown]
  - Wrong technique in product usage process [Unknown]
  - Haematemesis [Recovered/Resolved]
  - Atrial fibrillation [Unknown]
  - Acute myocardial infarction [Unknown]
  - Pneumonia aspiration [Unknown]
  - Sepsis [Unknown]
  - Vomiting [Unknown]
  - Dyspepsia [Unknown]
  - Oesophagitis [Unknown]
  - Dysphagia [Recovered/Resolved]
